FAERS Safety Report 10737027 (Version 3)
Quarter: 2015Q1

REPORT INFORMATION
  Report Type: Spontaneous
  Country: US (occurrence: None)
  Receive Date: 20150122
  Receipt Date: 20150212
  Transmission Date: 20150721
  Serious: Yes (Life-Threatening, Other)
  Sender: FDA-Public Use
  Company Number: 2015EXPUS00300

PATIENT
  Age: 76 Year
  Sex: Male
  Weight: 81.6 kg

DRUGS (1)
  1. EXPAREL [Suspect]
     Active Substance: BUPIVACAINE
     Indication: POSTOPERATIVE ANALGESIA
     Route: 050
     Dates: start: 20141105, end: 20141105

REACTIONS (7)
  - Fat embolism [None]
  - Respiratory arrest [None]
  - Seizure [None]
  - Amnesia [None]
  - Respiratory failure [None]
  - Hypotension [None]
  - Impaired driving ability [None]

NARRATIVE: CASE EVENT DATE: 20141105
